FAERS Safety Report 18718920 (Version 1)
Quarter: 2021Q1

REPORT INFORMATION
  Report Type: Spontaneous
  Country: US (occurrence: US)
  Receive Date: 20210108
  Receipt Date: 20210108
  Transmission Date: 20210419
  Serious: No
  Sender: FDA-Public Use
  Company Number: US-NOVOPROD-771552

PATIENT
  Sex: Female

DRUGS (1)
  1. RYBELSUS [Suspect]
     Active Substance: SEMAGLUTIDE
     Indication: TYPE 2 DIABETES MELLITUS
     Dosage: 7 MG
     Route: 048

REACTIONS (9)
  - Dehydration [Unknown]
  - Feeding disorder [Unknown]
  - Fluid intake reduced [Unknown]
  - Frequent bowel movements [Unknown]
  - Abdominal distension [Unknown]
  - Renal disorder [Unknown]
  - Drug intolerance [Unknown]
  - Blood glucose decreased [Unknown]
  - Urinary tract infection [Unknown]
